FAERS Safety Report 6758988-X (Version None)
Quarter: 2010Q2

REPORT INFORMATION
  Report Type: 
  Country: None (occurrence: None)
  Receive Date: 20100603
  Receipt Date: 20100521
  Transmission Date: 20101027
  Serious: Yes (Other)
  Sender: FDA-Public Use
  Company Number: 1000014128

PATIENT
  Age: 80 Year
  Sex: Female

DRUGS (1)
  1. MEMANTINE HCL [Suspect]
     Dates: end: 20100401

REACTIONS (2)
  - FALL [None]
  - MUSCLE TWITCHING [None]
